FAERS Safety Report 6236154-4 (Version None)
Quarter: 2009Q2

REPORT INFORMATION
  Report Type: 
  Country: None (occurrence: None)
  Receive Date: 20090619
  Receipt Date: 20090609
  Transmission Date: 20091009
  Serious: Yes (Death, Other)
  Sender: FDA-Public Use
  Company Number: GB-JNJFOC-20090603977

PATIENT

DRUGS (8)
  1. REMICADE [Suspect]
     Indication: DRUG EXPOSURE DURING PREGNANCY
  2. BECLOMETHASONE DIPROPIONATE [Concomitant]
     Indication: DRUG EXPOSURE DURING PREGNANCY
  3. CETRIZINE [Concomitant]
     Indication: DRUG EXPOSURE DURING PREGNANCY
  4. CHLORPHENIRAMINE MALEATE [Concomitant]
     Indication: DRUG EXPOSURE DURING PREGNANCY
  5. LOPERAMIDE HYDROCHLORIDE [Concomitant]
     Indication: DRUG EXPOSURE DURING PREGNANCY
  6. PREDNISOLONE [Concomitant]
     Indication: DRUG EXPOSURE DURING PREGNANCY
  7. ALBUTEROL [Concomitant]
     Indication: DRUG EXPOSURE DURING PREGNANCY
  8. SALMETEROL [Concomitant]
     Indication: DRUG EXPOSURE DURING PREGNANCY

REACTIONS (1)
  - MYOCARDIAL ISCHAEMIA [None]
